FAERS Safety Report 10596146 (Version 1)
Quarter: 2014Q4

REPORT INFORMATION
  Report Type: Spontaneous
  Country: US (occurrence: US)
  Receive Date: 20141120
  Receipt Date: 20141120
  Transmission Date: 20150529
  Serious: No
  Sender: FDA-Public Use
  Company Number: US-009507513-1410USA009391

PATIENT

DRUGS (2)
  1. BIVALIRUDIN [Suspect]
     Active Substance: BIVALIRUDIN
     Indication: ACUTE MYOCARDIAL INFARCTION
  2. EPTIFIBATIDE [Suspect]
     Active Substance: EPTIFIBATIDE
     Indication: ACUTE MYOCARDIAL INFARCTION

REACTIONS (7)
  - Retroperitoneal haemorrhage [Unknown]
  - Transfusion [Unknown]
  - Arteriovenous fistula [Unknown]
  - Haemorrhage [Unknown]
  - Vascular pseudoaneurysm [Unknown]
  - Haematoma [Unknown]
  - Gastrointestinal haemorrhage [Unknown]
